FAERS Safety Report 6762865-8 (Version None)
Quarter: 2010Q2

REPORT INFORMATION
  Report Type: 
  Country: None (occurrence: None)
  Receive Date: 20100608
  Receipt Date: 20100608
  Transmission Date: 20101027
  Serious: No
  Sender: FDA-Public Use
  Company Number: None

PATIENT
  Age: 51 Year
  Sex: Male
  Weight: 106.59 kg

DRUGS (2)
  1. PREGABALIN [Suspect]
     Indication: NEURALGIA
     Dosage: 100 MG BID PO
     Route: 048
     Dates: start: 20081112
  2. PREGABALIN [Suspect]
     Indication: PAIN
     Dosage: 100 MG BID PO
     Route: 048
     Dates: start: 20081112

REACTIONS (3)
  - NASOPHARYNGITIS [None]
  - RHINITIS [None]
  - RHINORRHOEA [None]
